FAERS Safety Report 10236901 (Version 4)
Quarter: 2015Q2

REPORT INFORMATION
  Report Type: Report from Study
  Country: GB (occurrence: GB)
  Receive Date: 20140613
  Receipt Date: 20150601
  Transmission Date: 20150821
  Serious: Yes (Other)
  Sender: FDA-Public Use
  Company Number: PHHY2014GB071690

PATIENT
  Age: 74 Year
  Sex: Male
  Weight: 58 kg

DRUGS (18)
  1. AVASTIN [Suspect]
     Active Substance: BEVACIZUMAB
     Indication: GASTRIC CANCER
     Route: 042
     Dates: start: 20110927
  2. SALBUTAMOL [Suspect]
     Active Substance: ALBUTEROL
     Route: 050
     Dates: start: 20120123, end: 20120208
  3. CISPLATIN. [Suspect]
     Active Substance: CISPLATIN
     Dosage: LATEST DOSE PRIOR TO SAE:08/NOV/2011
     Route: 042
     Dates: start: 20110927
  4. EPIRUBICIN [Suspect]
     Active Substance: EPIRUBICIN
     Dosage: LATEST DOSE PRIOR TO SAE: 08/NOV/2011
     Route: 042
     Dates: start: 20110927
  5. SALBUTAMOL [Suspect]
     Active Substance: ALBUTEROL
     Indication: PRODUCT USED FOR UNKNOWN INDICATION
     Dosage: 2.5 MG, QID
     Route: 050
     Dates: start: 20120123
  6. CISPLATIN. [Suspect]
     Active Substance: CISPLATIN
     Indication: GASTRIC CANCER
     Dosage: 107 MG, UNK
     Route: 042
     Dates: start: 20110927
  7. FUROSEMIDE. [Concomitant]
     Active Substance: FUROSEMIDE
     Indication: PRODUCT USED FOR UNKNOWN INDICATION
     Dosage: UNK
     Dates: start: 20120202, end: 20120204
  8. BEVACIZUMAB [Suspect]
     Active Substance: BEVACIZUMAB
  9. CIPROFLOXACIN. [Suspect]
     Active Substance: CIPROFLOXACIN
     Route: 042
     Dates: start: 20120203, end: 20120208
  10. DALTEPARIN [Concomitant]
     Active Substance: DALTEPARIN
     Indication: PRODUCT USED FOR UNKNOWN INDICATION
     Dosage: UNK
     Route: 058
     Dates: start: 20120123, end: 20120219
  11. PIPERACILLIN SODIUM [Concomitant]
     Active Substance: PIPERACILLIN SODIUM
     Indication: PRODUCT USED FOR UNKNOWN INDICATION
     Route: 065
  12. ACE//PARACETAMOL [Concomitant]
     Active Substance: ACETAMINOPHEN
     Indication: PRODUCT USED FOR UNKNOWN INDICATION
     Dosage: UNK
     Route: 065
     Dates: start: 20120123, end: 20120219
  13. AVASTIN [Suspect]
     Active Substance: BEVACIZUMAB
     Dosage: LATEST DOSE PRIOR TO SAE: 08/NOV/2011
     Route: 042
     Dates: start: 20110927
  14. EPIRUBICIN [Suspect]
     Active Substance: EPIRUBICIN
     Indication: GASTRIC CANCER
     Dosage: 90 MG, UNK
     Route: 042
     Dates: start: 20110927
  15. XELODA [Suspect]
     Active Substance: CAPECITABINE
     Indication: GASTRIC CANCER
     Dosage: 2150 MG, UNK
     Route: 048
     Dates: start: 20110927
  16. XELODA [Suspect]
     Active Substance: CAPECITABINE
     Dosage: LATEST DOSE PRIOR TO SAE: 29/NOV/2011
     Route: 048
     Dates: start: 20110927
  17. CIPROFLOXACIN. [Suspect]
     Active Substance: CIPROFLOXACIN
     Indication: PRODUCT USED FOR UNKNOWN INDICATION
     Dosage: 400 MG, BID
     Route: 042
     Dates: start: 20120203
  18. TEMAZEPAM. [Concomitant]
     Active Substance: TEMAZEPAM
     Indication: PRODUCT USED FOR UNKNOWN INDICATION
     Dosage: 10 MG, UNK
     Route: 048
     Dates: start: 20120203, end: 20120219

REACTIONS (1)
  - Atrial fibrillation [Recovered/Resolved]

NARRATIVE: CASE EVENT DATE: 20120204
